FAERS Safety Report 10174981 (Version 8)
Quarter: 2016Q3

REPORT INFORMATION
  Report Type: Report from Study
  Country: IT (occurrence: IT)
  Receive Date: 20140515
  Receipt Date: 20160810
  Transmission Date: 20161108
  Serious: Yes (Other)
  Sender: FDA-Public Use
  Company Number: PHHY2013IT151016

PATIENT
  Age: 50 Year
  Sex: Female

DRUGS (1)
  1. TASIGNA [Suspect]
     Active Substance: NILOTINIB
     Indication: CHRONIC MYELOID LEUKAEMIA
     Dosage: 600 MG, BID
     Route: 048
     Dates: start: 20101218

REACTIONS (13)
  - Oropharyngeal pain [Unknown]
  - Upper respiratory tract infection [Unknown]
  - Rhinitis [Unknown]
  - Urinary tract infection [Unknown]
  - Foot fracture [Unknown]
  - Escherichia urinary tract infection [Recovered/Resolved]
  - Influenza [Unknown]
  - Hypertension [Unknown]
  - Escherichia urinary tract infection [Recovered/Resolved]
  - Blister [Unknown]
  - Pruritus [Unknown]
  - Lymphadenitis [Recovered/Resolved]
  - Conjunctivitis [Recovered/Resolved]

NARRATIVE: CASE EVENT DATE: 20131109
